FAERS Safety Report 21415920 (Version 1)
Quarter: 2022Q4

REPORT INFORMATION
  Report Type: Spontaneous
  Country: US (occurrence: US)
  Receive Date: 20221006
  Receipt Date: 20221006
  Transmission Date: 20230113
  Serious: No
  Sender: FDA-Public Use
  Company Number: US-009507513-2210USA000127

PATIENT
  Age: 51 Year
  Sex: Female

DRUGS (1)
  1. BELSOMRA [Suspect]
     Active Substance: SUVOREXANT
     Indication: Insomnia
     Dosage: 10MG
     Route: 048
     Dates: start: 20220923, end: 20220929

REACTIONS (9)
  - Sleep disorder [Recovering/Resolving]
  - Sleep disorder [Recovering/Resolving]
  - Pruritus [Recovering/Resolving]
  - Chills [Recovering/Resolving]
  - Fatigue [Recovering/Resolving]
  - Dizziness [Recovering/Resolving]
  - Feeling jittery [Recovering/Resolving]
  - Cardiac disorder [Recovering/Resolving]
  - Adverse reaction [Recovering/Resolving]

NARRATIVE: CASE EVENT DATE: 20220923
